FAERS Safety Report 7897907-X (Version None)
Quarter: 2011Q4

REPORT INFORMATION
  Report Type: 
  Country: None (occurrence: None)
  Receive Date: 20111103
  Receipt Date: 20111024
  Transmission Date: 20120403
  Serious: Yes (Hospitalization)
  Sender: FDA-Public Use
  Company Number: 1000024907

PATIENT
  Age: 50 Year
  Sex: Male

DRUGS (14)
  1. VIBRYD (VILAZODONE)(10 MILLIGRAM, TABLETS) [Suspect]
     Indication: DEPRESSION
     Dosage: 10 MG (10 MG, 1 IN 1 D), ORAL; 20 MG (20 MG, 1 IN 1 D), ORAL
     Route: 048
     Dates: start: 20110915, end: 20110921
  2. VIBRYD (VILAZODONE)(10 MILLIGRAM, TABLETS) [Suspect]
     Indication: BIPOLAR DISORDER
     Dosage: 10 MG (10 MG, 1 IN 1 D), ORAL; 20 MG (20 MG, 1 IN 1 D), ORAL
     Route: 048
     Dates: start: 20110915, end: 20110921
  3. VIBRYD (VILAZODONE)(10 MILLIGRAM, TABLETS) [Suspect]
     Indication: DEPRESSION
     Dosage: 10 MG (10 MG, 1 IN 1 D), ORAL; 20 MG (20 MG, 1 IN 1 D), ORAL
     Route: 048
     Dates: start: 20110908, end: 20110914
  4. VIBRYD (VILAZODONE)(10 MILLIGRAM, TABLETS) [Suspect]
     Indication: BIPOLAR DISORDER
     Dosage: 10 MG (10 MG, 1 IN 1 D), ORAL; 20 MG (20 MG, 1 IN 1 D), ORAL
     Route: 048
     Dates: start: 20110908, end: 20110914
  5. VIIBRYD [Suspect]
     Indication: DEPRESSION
     Dosage: 40 MG (40 MG, 1 IN 1 D), ORAL
     Route: 048
     Dates: start: 20110922, end: 20111005
  6. VIIBRYD [Suspect]
     Indication: BIPOLAR DISORDER
     Dosage: 40 MG (40 MG, 1 IN 1 D), ORAL
     Route: 048
     Dates: start: 20110922, end: 20111005
  7. LYRICA [Concomitant]
  8. ABILIFY [Concomitant]
  9. NORVASC [Concomitant]
  10. DIOVAN [Concomitant]
  11. PRILOSEC [Concomitant]
  12. COGENTIN [Concomitant]
  13. ALBUTEROL [Concomitant]
  14. PERCOCET [Concomitant]

REACTIONS (3)
  - OFF LABEL USE [None]
  - HYPONATRAEMIA [None]
  - RHABDOMYOLYSIS [None]
